FAERS Safety Report 19881076 (Version 1)
Quarter: 2021Q3

REPORT INFORMATION
  Report Type: Spontaneous
  Country: FR (occurrence: FR)
  Receive Date: 20210924
  Receipt Date: 20210924
  Transmission Date: 20211014
  Serious: Yes (Hospitalization)
  Sender: FDA-Public Use
  Company Number: FR-TEVA-2021-FR-1956722

PATIENT
  Age: 22 Year
  Sex: Male

DRUGS (5)
  1. CANNABIS [Suspect]
     Active Substance: CANNABIS SATIVA SUBSP. INDICA TOP
     Route: 055
     Dates: start: 202107, end: 202107
  2. 3?MMC [Suspect]
     Active Substance: 3-METHYLMETHCATHINONE
     Route: 045
     Dates: start: 20210712, end: 20210712
  3. DIAZEPAM. [Suspect]
     Active Substance: DIAZEPAM
     Route: 048
     Dates: start: 202107, end: 202107
  4. COCAINE [Suspect]
     Active Substance: COCAINE
     Route: 045
     Dates: start: 20210712, end: 20210712
  5. 2?FLUORODESCHLOROKETAMINE [Suspect]
     Active Substance: FLUOROKETAMINE
     Route: 045
     Dates: start: 20210712, end: 20210712

REACTIONS (2)
  - Cardio-respiratory arrest [Recovered/Resolved with Sequelae]
  - Drug abuse [Recovered/Resolved with Sequelae]

NARRATIVE: CASE EVENT DATE: 20210712
